FAERS Safety Report 9683622 (Version 1)
Quarter: 2013Q4

REPORT INFORMATION
  Report Type: Spontaneous
  Country: US (occurrence: US)
  Receive Date: 20131112
  Receipt Date: 20131112
  Transmission Date: 20140711
  Serious: Yes (Death, Other)
  Sender: FDA-Public Use
  Company Number: US-PFIZER INC-2013317667

PATIENT
  Age: 51 Year
  Sex: Male

DRUGS (1)
  1. REVATIO [Suspect]
     Indication: CARDIAC FAILURE CONGESTIVE
     Dosage: 10 MG, 3X/DAY
     Dates: start: 20130816

REACTIONS (2)
  - Cerebrovascular accident [Fatal]
  - Off label use [Unknown]
